FAERS Safety Report 10100809 (Version 1)
Quarter: 2014Q2

REPORT INFORMATION
  Report Type: Spontaneous
  Country: FR (occurrence: FR)
  Receive Date: 20140423
  Receipt Date: 20140423
  Transmission Date: 20141212
  Serious: Yes (Hospitalization)
  Sender: FDA-Public Use
  Company Number: FR-EISAI INC-E7389-04999-SPO-FR

PATIENT
  Age: 54 Year
  Sex: Female

DRUGS (3)
  1. HALAVEN [Suspect]
     Indication: BREAST CANCER
     Dosage: UNKNOWN
     Route: 041
     Dates: start: 20131202, end: 20131209
  2. SEROPRAM [Suspect]
     Indication: ANXIETY
     Dosage: UNKNOWN
     Dates: start: 20131202, end: 20140103
  3. BENZODIAZEPINE [Concomitant]
     Indication: ANXIETY
     Dosage: UNKNOWN

REACTIONS (3)
  - Cardiac failure [Recovered/Resolved]
  - Ejection fraction decreased [Recovered/Resolved]
  - Neutropenia [Recovered/Resolved]
